FAERS Safety Report 8936093 (Version 1)
Quarter: 2012Q4

REPORT INFORMATION
  Report Type: 
  Country: US (occurrence: US)
  Receive Date: 20121130
  Receipt Date: 20121130
  Transmission Date: 20130627
  Serious: No
  Sender: FDA-Public Use
  Company Number: US-PFIZER INC-2012297892

PATIENT
  Age: 58 Year

DRUGS (6)
  1. NEURONTIN [Suspect]
     Dosage: UNK
  2. ZOLOFT [Suspect]
     Dosage: UNK
  3. ROPINIROLE HYDROCHLORIDE [Suspect]
     Dosage: UNK
  4. ZANAFLEX [Suspect]
     Dosage: UNK
  5. ABILIFY [Suspect]
     Dosage: UNK
  6. BENICAR [Suspect]
     Dosage: UNK

REACTIONS (1)
  - Drug hypersensitivity [Unknown]
